FAERS Safety Report 19427328 (Version 2)
Quarter: 2021Q3

REPORT INFORMATION
  Report Type: Spontaneous
  Country: US (occurrence: US)
  Receive Date: 20210617
  Receipt Date: 20210801
  Transmission Date: 20211014
  Serious: Yes (Other)
  Sender: FDA-Public Use
  Company Number: US-BEH-2021133007

PATIENT
  Age: 78 Year
  Sex: Female

DRUGS (10)
  1. ANASTROZOLE. [Concomitant]
     Active Substance: ANASTROZOLE
  2. OMEPRAZOLE. [Concomitant]
     Active Substance: OMEPRAZOLE
  3. HAEGARDA [Suspect]
     Active Substance: HUMAN C1-ESTERASE INHIBITOR
     Indication: HEREDITARY ANGIOEDEMA
     Dosage: 5000 INTERNATIONAL UNIT (10ML), BIW, EVERY 3 DAYS
     Route: 058
     Dates: start: 20210202
  4. BERINERT [Suspect]
     Active Substance: HUMAN C1-ESTERASE INHIBITOR
     Indication: HEREDITARY ANGIOEDEMA
     Dosage: 1500 INTERNATIONAL UNIT (30ML), PRN
     Route: 042
     Dates: start: 20201222
  5. VESICARE [Concomitant]
     Active Substance: SOLIFENACIN SUCCINATE
  6. EZETIMIBE. [Concomitant]
     Active Substance: EZETIMIBE
  7. OLOPATADINE. [Concomitant]
     Active Substance: OLOPATADINE
  8. HAEGARDA [Suspect]
     Active Substance: HUMAN C1-ESTERASE INHIBITOR
     Indication: PROPHYLAXIS
     Dosage: 5000 INTERNATIONAL UNIT (10ML), BIW, EVERY 3 DAYS
     Route: 058
     Dates: start: 20210201
  9. BERINERT [Suspect]
     Active Substance: HUMAN C1-ESTERASE INHIBITOR
     Indication: HEREDITARY ANGIOEDEMA
     Dosage: 1500 INTERNATIONAL UNIT (30ML), PRN
     Route: 042
     Dates: start: 20201222
  10. SALINE [SODIUM CHLORIDE] [Concomitant]
     Active Substance: SODIUM CHLORIDE

REACTIONS (3)
  - Bone density decreased [Not Recovered/Not Resolved]
  - Tooth disorder [Not Recovered/Not Resolved]
  - Hereditary angioedema [Not Recovered/Not Resolved]
